FAERS Safety Report 15568688 (Version 3)
Quarter: 2019Q1

REPORT INFORMATION
  Report Type: Spontaneous
  Country: FR (occurrence: FR)
  Receive Date: 20181031
  Receipt Date: 20190128
  Transmission Date: 20190417
  Serious: Yes (Hospitalization, Other)
  Sender: FDA-Public Use
  Company Number: FR-AUROBINDO-AUR-APL-2018-052729

PATIENT
  Sex: Female

DRUGS (3)
  1. TRAMADOL. [Suspect]
     Active Substance: TRAMADOL
     Indication: PRODUCT USED FOR UNKNOWN INDICATION
     Dosage: 2 DOSAGE FORM, QD
     Route: 065
  2. PAROXETINE. [Interacting]
     Active Substance: PAROXETINE
     Indication: DEPRESSION
     Dosage: 20 MILLIGRAM, ONCE A DAY
     Route: 048
     Dates: start: 2006
  3. PAROXETINE. [Interacting]
     Active Substance: PAROXETINE
     Dosage: 1 DOSAGE FORM, ONCE A DAY
     Route: 048
     Dates: start: 2006

REACTIONS (10)
  - Swollen tongue [Unknown]
  - Hot flush [Unknown]
  - Blister [Unknown]
  - Angioedema [Unknown]
  - Paralysis [Unknown]
  - Dyspnoea [Recovering/Resolving]
  - Labelled drug-drug interaction medication error [Unknown]
  - Drug interaction [Unknown]
  - Rash macular [Unknown]
  - Medication error [Unknown]

NARRATIVE: CASE EVENT DATE: 20180930
